FAERS Safety Report 24043738 (Version 1)
Quarter: 2024Q3

REPORT INFORMATION
  Report Type: Spontaneous
  Country: US (occurrence: US)
  Receive Date: 20240703
  Receipt Date: 20240703
  Transmission Date: 20241016
  Serious: No
  Sender: HETERO
  Company Number: US-HETERO-HET2024US02012

PATIENT
  Sex: Female
  Weight: 61.23 kg

DRUGS (4)
  1. VALACYCLOVIR [Suspect]
     Active Substance: VALACYCLOVIR HYDROCHLORIDE
     Indication: Herpes simplex
     Dosage: (ONCE A DAY) QD
     Route: 048
  2. ALENDRONATE SODIUM [Concomitant]
     Active Substance: ALENDRONATE SODIUM
     Indication: Product used for unknown indication
     Dosage: 1 DOSAGE FORM, QW (ONE TABLET ONCE A WEEK)
     Route: 065
  3. EZETIMIBE [Concomitant]
     Active Substance: EZETIMIBE
     Indication: Blood cholesterol abnormal
     Dosage: EVERY NIGHT
     Route: 065
  4. LATANOPROST [Concomitant]
     Active Substance: LATANOPROST
     Indication: Glaucoma
     Dosage: UNK
     Route: 065

REACTIONS (2)
  - Peripheral swelling [Recovering/Resolving]
  - Joint swelling [Recovering/Resolving]
